FAERS Safety Report 6262318-X (Version None)
Quarter: 2009Q3

REPORT INFORMATION
  Report Type: 
  Country: None (occurrence: None)
  Receive Date: 20090709
  Receipt Date: 20090702
  Transmission Date: 20100115
  Serious: Yes (Death, Hospitalization)
  Sender: FDA-Public Use
  Company Number: AR-BRISTOL-MYERS SQUIBB COMPANY-14668750

PATIENT
  Age: 78 Year
  Sex: Male

DRUGS (7)
  1. APIXABAN [Suspect]
     Indication: THROMBOSIS PROPHYLAXIS
     Dosage: DRUG INTERRUPTED ON : 04-JUN-2009
     Route: 048
     Dates: start: 20090206
  2. WARFARIN SODIUM [Suspect]
     Indication: THROMBOSIS PROPHYLAXIS
     Dosage: DRUG INTERRUPTED ON : 04-JUN-2009
     Route: 048
     Dates: start: 20090206
  3. PLACEBO [Suspect]
     Indication: THROMBOSIS PROPHYLAXIS
     Dosage: DRUG INTERRUPTED ON : 04-JUN-2009
     Route: 048
     Dates: start: 20090206
  4. CARVEDILOL [Concomitant]
     Dates: end: 20090604
  5. ENALAPRIL [Concomitant]
     Dates: end: 20090604
  6. METFORMIN HCL [Concomitant]
     Dates: end: 20090604
  7. FUROSEMIDE [Concomitant]
     Dates: end: 20090604

REACTIONS (2)
  - GASTRIC ULCER HAEMORRHAGE [None]
  - HYPOVOLAEMIC SHOCK [None]
